FAERS Safety Report 10360375 (Version 1)
Quarter: 2014Q3

REPORT INFORMATION
  Report Type: Spontaneous
  Country: US (occurrence: None)
  Receive Date: 20140801
  Receipt Date: 20140801
  Transmission Date: 20150326
  Serious: Yes (Other)
  Sender: FDA-Public Use
  Company Number: None

PATIENT
  Age: 61 Year
  Sex: Female

DRUGS (1)
  1. SPIRONOLACTONE 25MG QUALITEST [Suspect]
     Active Substance: SPIRONOLACTONE
     Indication: BLOOD PRESSURE
     Dosage: ONE TAB  QD  PO?DURATION: ABOUT A MONTH
     Route: 048
     Dates: start: 201405

REACTIONS (2)
  - Eye pain [None]
  - Vision blurred [None]
